FAERS Safety Report 9822700 (Version 1)
Quarter: 2014Q1

REPORT INFORMATION
  Report Type: Spontaneous
  Country: CA (occurrence: CA)
  Receive Date: 20140116
  Receipt Date: 20140116
  Transmission Date: 20141002
  Serious: Yes (Other)
  Sender: FDA-Public Use
  Company Number: CA-ROCHE-1333331

PATIENT
  Sex: Male

DRUGS (3)
  1. XOLAIR [Suspect]
     Indication: ASTHMA
     Route: 058
     Dates: start: 20130523
  2. ALVESCO [Concomitant]
  3. SPIRIVA [Concomitant]

REACTIONS (3)
  - Pulmonary mass [Unknown]
  - Depression [Recovering/Resolving]
  - Injection site pain [Unknown]
